FAERS Safety Report 20091565 (Version 1)
Quarter: 2021Q4

REPORT INFORMATION
  Report Type: Spontaneous
  Country: US (occurrence: None)
  Receive Date: 20211119
  Receipt Date: 20211119
  Transmission Date: 20220303
  Serious: Yes (Hospitalization)
  Sender: FDA-Public Use
  Company Number: None

PATIENT
  Age: 63 Year
  Sex: Male
  Weight: 88.45 kg

DRUGS (1)
  1. ATOVAQUONE [Suspect]
     Active Substance: ATOVAQUONE
     Indication: Antifungal prophylaxis
     Dosage: FREQUENCY : DAILY;?
     Route: 048
     Dates: start: 20210517, end: 20210810

REACTIONS (2)
  - Jaundice [None]
  - Hepatitis [None]

NARRATIVE: CASE EVENT DATE: 20210813
